FAERS Safety Report 15370083 (Version 4)
Quarter: 2024Q1

REPORT INFORMATION
  Report Type: Spontaneous
  Country: IT (occurrence: IT)
  Receive Date: 20180911
  Receipt Date: 20240326
  Transmission Date: 20240410
  Serious: Yes (Other)
  Sender: FDA-Public Use
  Company Number: PHHY2018IT073109

PATIENT
  Age: 46 Year
  Sex: Female

DRUGS (20)
  1. PACLITAXEL [Suspect]
     Active Substance: PACLITAXEL
     Indication: Invasive lobular breast carcinoma
     Dosage: 260 MG/M2, TIW (TRI-WEEKLY NAB-PACLITAXEL)
     Route: 065
     Dates: start: 201404, end: 201502
  2. PACLITAXEL [Suspect]
     Active Substance: PACLITAXEL
     Indication: Malignant neoplasm progression
  3. PACLITAXEL [Suspect]
     Active Substance: PACLITAXEL
     Indication: Metastases to bone
  4. PACLITAXEL [Suspect]
     Active Substance: PACLITAXEL
     Indication: Metastases to liver
  5. PACLITAXEL [Suspect]
     Active Substance: PACLITAXEL
     Indication: Metastases to lymph nodes
  6. PACLITAXEL [Suspect]
     Active Substance: PACLITAXEL
     Indication: Metastases to skin
  7. PACLITAXEL [Suspect]
     Active Substance: PACLITAXEL
     Indication: Metastases to pleura
  8. ZOLEDRONIC ACID [Suspect]
     Active Substance: ZOLEDRONIC ACID
     Indication: Invasive lobular breast carcinoma
     Dosage: TRI-WEEKLY
     Route: 065
     Dates: start: 201404, end: 201502
  9. ZOLEDRONIC ACID [Suspect]
     Active Substance: ZOLEDRONIC ACID
     Indication: Malignant neoplasm progression
  10. ZOLEDRONIC ACID [Suspect]
     Active Substance: ZOLEDRONIC ACID
     Indication: Metastases to bone
  11. ZOLEDRONIC ACID [Suspect]
     Active Substance: ZOLEDRONIC ACID
     Indication: Metastases to lymph nodes
  12. ZOLEDRONIC ACID [Suspect]
     Active Substance: ZOLEDRONIC ACID
     Indication: Metastases to liver
  13. ZOLEDRONIC ACID [Suspect]
     Active Substance: ZOLEDRONIC ACID
     Indication: Metastases to pleura
  14. ZOLEDRONIC ACID [Suspect]
     Active Substance: ZOLEDRONIC ACID
     Indication: Metastases to skin
  15. EVEROLIMUS [Suspect]
     Active Substance: EVEROLIMUS
     Indication: Breast cancer metastatic
     Dosage: 10 MG, QD
     Route: 065
  16. EVEROLIMUS [Suspect]
     Active Substance: EVEROLIMUS
     Indication: Malignant neoplasm progression
  17. EVEROLIMUS [Suspect]
     Active Substance: EVEROLIMUS
     Indication: Invasive lobular breast carcinoma
  18. EXEMESTANE [Suspect]
     Active Substance: EXEMESTANE
     Indication: Breast cancer metastatic
     Dosage: 25 MG, QD
     Route: 065
  19. EXEMESTANE [Suspect]
     Active Substance: EXEMESTANE
     Indication: Malignant neoplasm progression
  20. FULVESTRANT [Concomitant]
     Active Substance: FULVESTRANT
     Indication: Disease progression
     Dosage: 500 MG, UNK
     Route: 065

REACTIONS (4)
  - Mucosal inflammation [Unknown]
  - Alopecia [Unknown]
  - Asthenia [Unknown]
  - Neuropathy peripheral [Unknown]
